FAERS Safety Report 8098431-4 (Version None)
Quarter: 2012Q1

REPORT INFORMATION
  Report Type: 
  Country: None (occurrence: None)
  Receive Date: 20120131
  Receipt Date: 20120125
  Transmission Date: 20120608
  Serious: No
  Sender: FDA-Public Use
  Company Number: US-JNJFOC-20120112704

PATIENT
  Sex: Male
  Weight: 83.92 kg

DRUGS (4)
  1. INVEGA SUSTENNA [Suspect]
     Indication: SCHIZOPHRENIA
     Route: 030
     Dates: start: 20110801
  2. ATIVAN [Concomitant]
     Indication: ANXIETY
     Route: 065
     Dates: start: 20111101
  3. RISPERDAL [Concomitant]
     Indication: SCHIZOPHRENIA
     Route: 048
     Dates: start: 20111027, end: 20120125
  4. SERTRALINE HYDROCHLORIDE [Concomitant]
     Indication: ANXIETY
     Route: 048
     Dates: start: 20100101, end: 20110101

REACTIONS (4)
  - ANXIETY [None]
  - CONFUSIONAL STATE [None]
  - SLEEP DISORDER [None]
  - TREATMENT NONCOMPLIANCE [None]
